FAERS Safety Report 20474886 (Version 2)
Quarter: 2022Q4

REPORT INFORMATION
  Report Type: Spontaneous
  Country: CH (occurrence: CH)
  Receive Date: 20220215
  Receipt Date: 20221003
  Transmission Date: 20230113
  Serious: Yes (Hospitalization)
  Sender: FDA-Public Use
  Company Number: CH-ELI_LILLY_AND_COMPANY-CH202112002911

PATIENT
  Sex: Male
  Weight: 63.1 kg

DRUGS (1)
  1. TALTZ [Suspect]
     Active Substance: IXEKIZUMAB
     Indication: Psoriasis
     Dosage: 80 MG, MONTHLY (1/M)
     Route: 058
     Dates: start: 202103, end: 202111

REACTIONS (2)
  - Dermo-hypodermitis [Unknown]
  - Dermo-hypodermitis [Recovered/Resolved]

NARRATIVE: CASE EVENT DATE: 20211001
